FAERS Safety Report 24302890 (Version 1)
Quarter: 2024Q3

REPORT INFORMATION
  Report Type: Spontaneous
  Country: US (occurrence: US)
  Receive Date: 20240910
  Receipt Date: 20240910
  Transmission Date: 20241017
  Serious: No
  Sender: MAYNE
  Company Number: US-MAYNE PHARMA-2024MYN000251

PATIENT

DRUGS (1)
  1. SOLTAMOX [Suspect]
     Active Substance: TAMOXIFEN CITRATE
     Indication: Product used for unknown indication
     Route: 065

REACTIONS (2)
  - Bone pain [Unknown]
  - Arthralgia [Unknown]
